FAERS Safety Report 19200604 (Version 5)
Quarter: 2023Q2

REPORT INFORMATION
  Report Type: Spontaneous
  Country: CA (occurrence: CA)
  Receive Date: 20210430
  Receipt Date: 20230529
  Transmission Date: 20230722
  Serious: Yes (Other)
  Sender: FDA-Public Use
  Company Number: CA-PFIZER INC-2021092671

PATIENT
  Age: 4 Year
  Sex: Male

DRUGS (2)
  1. GENOTROPIN [Suspect]
     Active Substance: SOMATROPIN
     Indication: Small for dates baby
     Dosage: 0.8 MG, 6 TIMES A WEEK
     Route: 058
     Dates: start: 20200421
  2. GENOTROPIN [Suspect]
     Active Substance: SOMATROPIN
     Dosage: 1 MG, 6 TIMES A WEEK
     Route: 058
     Dates: start: 2021

REACTIONS (10)
  - Lower limb fracture [Recovering/Resolving]
  - Accident [Unknown]
  - Weight gain poor [Not Recovered/Not Resolved]
  - Increased appetite [Recovering/Resolving]
  - Insulin-like growth factor increased [Unknown]
  - Snoring [Not Recovered/Not Resolved]
  - Dyspnoea [Unknown]
  - Extraskeletal ossification [Not Recovered/Not Resolved]
  - Bone disorder [Not Recovered/Not Resolved]
  - Blood alkaline phosphatase increased [Not Recovered/Not Resolved]

NARRATIVE: CASE EVENT DATE: 20201111
